FAERS Safety Report 11278837 (Version 1)
Quarter: 2015Q3

REPORT INFORMATION
  Report Type: Spontaneous
  Country: GB (occurrence: None)
  Receive Date: 20150715
  Receipt Date: 20150715
  Transmission Date: 20151125
  Serious: Yes (Hospitalization)
  Sender: FDA-Public Use
  Company Number: ABR_02297_2015

PATIENT
  Age: 62 Year
  Sex: Male
  Weight: 93 kg

DRUGS (6)
  1. GENUINE ASPIRIN [Concomitant]
     Active Substance: ASPIRIN
  2. BISOPROLOL [Concomitant]
     Active Substance: BISOPROLOL
  3. RAMIPRIL. [Concomitant]
     Active Substance: RAMIPRIL
  4. ATORVASTATIN CALCIUM. [Concomitant]
     Active Substance: ATORVASTATIN CALCIUM
  5. GLYCERYL TRINITRATE (GLYCERYL TRINITRATE) [Suspect]
     Active Substance: NITROGLYCERIN
     Indication: ACUTE CORONARY SYNDROME
     Dosage: DF
     Route: 060
     Dates: start: 20091016
  6. DALCETRAPIB [Concomitant]
     Active Substance: DALCETRAPIB

REACTIONS (5)
  - Chest pain [None]
  - Syncope [None]
  - Loss of consciousness [None]
  - Troponin T increased [None]
  - Fall [None]

NARRATIVE: CASE EVENT DATE: 20111004
